FAERS Safety Report 6243785-4 (Version None)
Quarter: 2009Q2

REPORT INFORMATION
  Report Type: 
  Country: None (occurrence: None)
  Receive Date: 20090624
  Receipt Date: 20090616
  Transmission Date: 20091009
  Serious: Yes (Other)
  Sender: FDA-Public Use
  Company Number: CA-ASTRAZENECA-2009UW15446

PATIENT
  Age: 53 Year
  Sex: Male
  Weight: 86.2 kg

DRUGS (3)
  1. CRESTOR [Suspect]
     Indication: CORONARY ARTERY DISEASE
     Route: 048
     Dates: start: 20090615
  2. LANTUS [Concomitant]
     Indication: DIABETES MELLITUS
     Dosage: 20 UNITS
     Route: 058
  3. HUMALOG [Concomitant]
     Indication: DIABETES MELLITUS
     Dosage: 10 UNITS
     Route: 058

REACTIONS (4)
  - BLOOD GLUCOSE INCREASED [None]
  - DIABETES MELLITUS [None]
  - FEELING ABNORMAL [None]
  - MALAISE [None]
